FAERS Safety Report 19217368 (Version 1)
Quarter: 2021Q2

REPORT INFORMATION
  Report Type: Spontaneous
  Country: US (occurrence: US)
  Receive Date: 20210505
  Receipt Date: 20210505
  Transmission Date: 20210717
  Serious: No
  Sender: FDA-Public Use
  Company Number: US-SA-2021SA138265

PATIENT
  Sex: Female

DRUGS (1)
  1. XYZAL ALLERGY 24HR [Suspect]
     Active Substance: LEVOCETIRIZINE DIHYDROCHLORIDE
     Indication: SEASONAL ALLERGY
     Dosage: TOOK 1 PILL AT NIGHT
     Route: 065

REACTIONS (5)
  - Feeling abnormal [Unknown]
  - Therapeutic response shortened [Unknown]
  - Somnolence [Unknown]
  - Palpitations [Unknown]
  - Heart rate increased [Unknown]
